FAERS Safety Report 8967858 (Version 1)
Quarter: 2012Q4

REPORT INFORMATION
  Report Type: 
  Country: US (occurrence: US)
  Receive Date: 20121218
  Receipt Date: 20121218
  Transmission Date: 20130627
  Serious: No
  Sender: FDA-Public Use
  Company Number: US-MYLANLABS-2012S1014229

PATIENT
  Age: 55 Year
  Sex: Male
  Weight: 107 kg

DRUGS (6)
  1. ROCURONIUM BROMIDE [Suspect]
     Indication: ANAESTHESIA
     Route: 042
     Dates: start: 20120705, end: 20120705
  2. ROCURONIUM BROMIDE [Suspect]
     Indication: RADICAL PROSTATECTOMY
     Route: 042
     Dates: start: 20120705, end: 20120705
  3. PRINZIDE [Concomitant]
  4. ASA [Concomitant]
  5. MVI [Concomitant]
  6. AMBIEN [Concomitant]

REACTIONS (2)
  - Drug effect decreased [Recovered/Resolved]
  - Anaesthetic complication [Recovered/Resolved]
